FAERS Safety Report 6633686-1 (Version None)
Quarter: 2010Q1

REPORT INFORMATION
  Report Type: 
  Country: None (occurrence: None)
  Receive Date: 20100314
  Receipt Date: 20100303
  Transmission Date: 20100710
  Serious: Yes (Other)
  Sender: FDA-Public Use
  Company Number: US-JNJFOC-20100301275

PATIENT
  Age: 65 Year
  Sex: Female

DRUGS (3)
  1. REMICADE [Suspect]
     Indication: CROHN'S DISEASE
     Route: 042
  2. REMICADE [Suspect]
     Route: 042
  3. ASTHMA MEDICATION [Concomitant]
     Indication: ASTHMA

REACTIONS (2)
  - ADENOCARCINOMA [None]
  - THERAPEUTIC RESPONSE DECREASED [None]
